FAERS Safety Report 4424589-1 (Version None)
Quarter: 2004Q3

REPORT INFORMATION
  Report Type: 
  Country: None (occurrence: None)
  Receive Date: 20040809
  Receipt Date: 20040721
  Transmission Date: 20050211
  Serious: Yes (Other)
  Sender: FDA-Public Use
  Company Number: 2003-05669

PATIENT
  Sex: Male
  Weight: 85 kg

DRUGS (5)
  1. EMTRICITABINE (EMTRICITABINE) [Suspect]
     Indication: HIV INFECTION
     Dosage: 200 MG, ONCE A DAY, ORAL
     Route: 048
     Dates: start: 20000802, end: 20030528
  2. DIDANOSINE (DIDANOSINE) [Suspect]
     Indication: HIV INFECTION
     Dosage: 400 MG, ONCE A DAY, ORAL
     Route: 048
     Dates: start: 20000802, end: 20030528
  3. RIBAVIRIN [Suspect]
     Indication: HEPATITIS C
     Dosage: 1000 MG
     Dates: start: 20030205, end: 20030528
  4. EFAVIRENZ (EFAVIRENZ) [Concomitant]
  5. PEGINTERFERON (PEGINTERFERON ALFA-2B) [Concomitant]

REACTIONS (4)
  - DIARRHOEA [None]
  - HYPERHIDROSIS [None]
  - PANCREATITIS [None]
  - REFUSAL OF TREATMENT BY PATIENT [None]
